FAERS Safety Report 15742611 (Version 7)
Quarter: 2019Q2

REPORT INFORMATION
  Report Type: Report from Study
  Country: DE (occurrence: DE)
  Receive Date: 20181219
  Receipt Date: 20190527
  Transmission Date: 20190711
  Serious: Yes (Death, Hospitalization, Other)
  Sender: FDA-Public Use
  Company Number: DE-BRISTOL-MYERS SQUIBB COMPANY-BMS-2018-119059

PATIENT
  Age: 60 Year
  Sex: Male

DRUGS (4)
  1. NIVOLUMAB [Suspect]
     Active Substance: NIVOLUMAB
     Indication: SQUAMOUS CELL CARCINOMA OF HEAD AND NECK
     Dosage: 1 DF, Q2WK
     Route: 042
     Dates: start: 20181001, end: 20181126
  2. DOLOPHINE [Concomitant]
     Active Substance: METHADONE HYDROCHLORIDE
     Indication: MALIGNANT NEOPLASM PROGRESSION
     Dosage: 1 DF, UNK
     Route: 065
  3. MORPHIN SULFATE SINTETICA [Concomitant]
     Indication: MALIGNANT NEOPLASM PROGRESSION
     Dosage: 20 MG, UNK
     Route: 065
  4. NOVAMINSULFON [Concomitant]
     Active Substance: METAMIZOLE
     Indication: MALIGNANT NEOPLASM PROGRESSION
     Dosage: 1 DF, UNK
     Route: 065

REACTIONS (7)
  - Dysphagia [Not Recovered/Not Resolved]
  - Swelling face [Not Recovered/Not Resolved]
  - Dyspnoea [Recovered/Resolved]
  - Malignant neoplasm progression [Fatal]
  - Lymphatic disorder [Unknown]
  - Syncope [Not Recovered/Not Resolved]
  - Lymphoedema [Not Recovered/Not Resolved]

NARRATIVE: CASE EVENT DATE: 20181108
